FAERS Safety Report 9274437 (Version 1)
Quarter: 2013Q2

REPORT INFORMATION
  Report Type: Spontaneous
  Country: BR (occurrence: BR)
  Receive Date: 20130506
  Receipt Date: 20130506
  Transmission Date: 20140414
  Serious: Yes (Other)
  Sender: FDA-Public Use
  Company Number: BR-AMGEN-BRACT2012001145

PATIENT
  Age: 50 Year
  Sex: Female
  Weight: 75 kg

DRUGS (2)
  1. ENBREL [Suspect]
     Indication: RHEUMATOID ARTHRITIS
     Dosage: 50 MG, QWK
     Route: 058
     Dates: start: 201101
  2. ENBREL [Suspect]
     Dosage: 50 MG, QWK
     Dates: start: 201101, end: 201111

REACTIONS (6)
  - Wrong technique in drug usage process [Unknown]
  - Platelet count decreased [Not Recovered/Not Resolved]
  - Dengue fever [Not Recovered/Not Resolved]
  - Urinary tract infection [Not Recovered/Not Resolved]
  - Injection site pain [Unknown]
  - Anaemia [Not Recovered/Not Resolved]
